FAERS Safety Report 5711647-4 (Version None)
Quarter: 2008Q2

REPORT INFORMATION
  Report Type: 
  Country: None (occurrence: None)
  Receive Date: 20080416
  Receipt Date: 20080410
  Transmission Date: 20081010
  Serious: Yes (Hospitalization)
  Sender: FDA-Public Use
  Company Number: 2008SP006835

PATIENT
  Age: 73 Year
  Sex: Female
  Weight: 48 kg

DRUGS (6)
  1. TEMODAL (TEMOZOLOMIDE) (TEMOZOLOMIDE) [Suspect]
     Indication: LYMPHOMA
     Dates: start: 20071129
  2. METHOTREXATE [Suspect]
     Indication: LYMPHOMA
     Dosage: IV
     Route: 042
     Dates: start: 20071129
  3. MEDROL [Concomitant]
  4. DEROXAT [Concomitant]
  5. LEXOMIL [Concomitant]
  6. NEXIUM [Concomitant]

REACTIONS (4)
  - CATHETER RELATED INFECTION [None]
  - ENTEROBACTER INFECTION [None]
  - RENAL FAILURE ACUTE [None]
  - RENAL TUBULAR NECROSIS [None]
